FAERS Safety Report 7762101-X (Version None)
Quarter: 2011Q3

REPORT INFORMATION
  Report Type: 
  Country: None (occurrence: None)
  Receive Date: 20110920
  Receipt Date: 20110920
  Transmission Date: 20111222
  Serious: No
  Sender: FDA-Public Use
  Company Number: None

PATIENT
  Sex: Male
  Weight: 77.11 kg

DRUGS (1)
  1. LEVAQUIN [Suspect]
     Indication: CYSTITIS
     Dosage: 1
     Route: 048
     Dates: start: 20110715, end: 20110717

REACTIONS (5)
  - DYSSTASIA [None]
  - ARTHRALGIA [None]
  - GAIT DISTURBANCE [None]
  - FRUSTRATION [None]
  - ACTIVITIES OF DAILY LIVING IMPAIRED [None]
